FAERS Safety Report 15613738 (Version 1)
Quarter: 2018Q4

REPORT INFORMATION
  Report Type: Spontaneous
  Country: DK (occurrence: DK)
  Receive Date: 20181113
  Receipt Date: 20181113
  Transmission Date: 20190205
  Serious: Yes (Death, Life-Threatening)
  Sender: FDA-Public Use
  Company Number: DK-PFM-2018-13279

PATIENT

DRUGS (14)
  1. NAVELBINE [Suspect]
     Active Substance: VINORELBINE TARTRATE
     Dosage: 140 MG, UNK
     Route: 048
     Dates: start: 20180913
  2. MORFIN [Concomitant]
     Active Substance: MORPHINE SULFATE
     Indication: PAIN
     Dosage: 1 DF, BID (2/DAY)
     Route: 048
     Dates: start: 20160706
  3. DOMPERIDONE [Concomitant]
     Active Substance: DOMPERIDONE
     Indication: NAUSEA
     Dosage: 1 DF AS NEED (NOT MORE THAN 3 A DAY)
     Route: 048
     Dates: start: 20180906
  4. CARBOPLATIN ^FRESENIUS KABI^ [Suspect]
     Active Substance: CARBOPLATIN
     Indication: LUNG NEOPLASM MALIGNANT
     Dosage: 355 MG, UNK
     Route: 042
     Dates: start: 20180906
  5. PREDNISOLONE. [Concomitant]
     Active Substance: PREDNISOLONE
     Indication: NAUSEA
     Dosage: 1 TABS IN THE MORNING BEFORE TREATMENT
     Route: 048
     Dates: start: 20180906, end: 20180906
  6. NAVELBINE [Suspect]
     Active Substance: VINORELBINE TARTRATE
     Indication: LUNG NEOPLASM MALIGNANT
     Dosage: 250 MG INSTEAD OF 110 MG (DIVIDED IN DOSE OF 30 OR 80 MG)
     Route: 048
     Dates: start: 20180906
  7. PANTOPRAZOLE SODIUM SESQUIHYDRATE [Concomitant]
     Active Substance: PANTOPRAZOLE SODIUM
     Indication: GASTROOESOPHAGEAL REFLUX DISEASE
     Dosage: STYRKE: 40 MG
     Route: 048
     Dates: start: 20140514
  8. ONDANSETRON [Concomitant]
     Active Substance: ONDANSETRON
     Indication: NAUSEA
     Dosage: 8 MG, QD (1/DAY) IN THE MORNING BEFORE TREATMENT
     Route: 048
     Dates: start: 20180906, end: 20180906
  9. PARACETAMOL [Concomitant]
     Active Substance: ACETAMINOPHEN
     Indication: PAIN
     Dosage: 1995 MG, QD (1/DAY)
     Route: 048
     Dates: start: 20160627
  10. VENTOLINE [Concomitant]
     Active Substance: ALBUTEROL
     Indication: BRONCHOSPASM
     Dosage: TWO DOSES OF 0.1 MG AS NEEDED
     Route: 055
     Dates: start: 20110621
  11. GABAPENTIN. [Concomitant]
     Active Substance: GABAPENTIN
     Indication: PAIN
     Dosage: 900 MG, QD (1/DAY)
     Route: 048
     Dates: start: 20160627
  12. MORFIN [Concomitant]
     Active Substance: MORPHINE SULFATE
     Indication: PAIN
     Dosage: 1 DF AS NEEDED, NOT MORE THAN 4 A DAY
     Route: 048
     Dates: start: 20180801
  13. CALCIUM + VITAMIN D3 [Concomitant]
     Active Substance: CALCIUM\CHOLECALCIFEROL
     Indication: MINERAL SUPPLEMENTATION
     Dosage: 2 DF, QD (1/DAY)
     Route: 048
     Dates: start: 20170614
  14. TIOTROPIUM [Concomitant]
     Active Substance: TIOTROPIUM
     Indication: CHRONIC OBSTRUCTIVE PULMONARY DISEASE
     Dosage: 18 ?G, QD (1/DAY)
     Route: 055
     Dates: start: 20120523

REACTIONS (5)
  - Septic shock [Fatal]
  - Overdose [Fatal]
  - Incorrect dosage administered [Fatal]
  - Neutropenic infection [Fatal]
  - Circulatory collapse [Fatal]

NARRATIVE: CASE EVENT DATE: 201809
